FAERS Safety Report 10174748 (Version 2)
Quarter: 2014Q2

REPORT INFORMATION
  Report Type: Spontaneous
  Country: US (occurrence: None)
  Receive Date: 20140416
  Receipt Date: 20140604
  Transmission Date: 20141212
  Serious: Yes (Hospitalization, Other)
  Sender: FDA-Public Use
  Company Number: 163-POMAL-13112460

PATIENT
  Age: 69 Year
  Sex: Male
  Weight: 65.36 kg

DRUGS (15)
  1. POMALYST [Suspect]
     Indication: PLASMA CELL MYELOMA
     Dosage: 4  MG , 1 IN 1 D,  PO,  MAR/2013 - UNKNOWN
     Route: 048
     Dates: start: 201303
  2. CARFILZOMIB (CARFILZOMIB) [Concomitant]
  3. DEXAMETHASONE (DEXAMETHASONE) [Concomitant]
  4. ACYCLOVIR (ACICLOVIR) [Concomitant]
  5. GABAPENTIN (GABAPENTIN) [Concomitant]
  6. HYDROCHLOROTHIAZIDE (HYDROCHLOROTHIAZIDE) [Concomitant]
  7. NOVOLOG (INSULIN ASPART) [Concomitant]
  8. LEVOFLOXACIN (LEVOFLOXACIN) [Concomitant]
  9. ONDANSETRON (ONDANSETRON) [Concomitant]
  10. OXYCODONE (OXYCODONE) [Concomitant]
  11. PROCHLORPERAZINE (PROCHLORPERAZINE) [Concomitant]
  12. BACTRIM DS (BACTRIM) [Concomitant]
  13. CYTOXAN (CYCLOPHOSPHAMIDE) [Concomitant]
  14. LACTULOSE (LACTULOSE) [Concomitant]
  15. TYLENOL (PARACETAMOL) [Concomitant]

REACTIONS (3)
  - Anaemia [None]
  - Unevaluable event [None]
  - Plasma cell myeloma [None]
